FAERS Safety Report 14926386 (Version 2)
Quarter: 2020Q4

REPORT INFORMATION
  Report Type: Spontaneous
  Country: AU (occurrence: AU)
  Receive Date: 20180523
  Receipt Date: 20201012
  Transmission Date: 20210113
  Serious: Yes (Hospitalization, Other)
  Sender: FDA-Public Use
  Company Number: AU-ROCHE-2126154

PATIENT
  Age: 49 Year
  Sex: Female

DRUGS (30)
  1. DILTIAZEM. [Concomitant]
     Active Substance: DILTIAZEM
     Route: 048
  2. SIROLIMUS. [Concomitant]
     Active Substance: SIROLIMUS
     Route: 048
  3. SODIBIC [Concomitant]
     Route: 048
  4. SENSIPAR [Concomitant]
     Active Substance: CINACALCET HYDROCHLORIDE
  5. WARFARIN [Concomitant]
     Active Substance: WARFARIN
     Route: 042
  6. CELLCEPT [Suspect]
     Active Substance: MYCOPHENOLATE MOFETIL\MYCOPHENOLATE MOFETIL HYDROCHLORIDE
     Route: 048
     Dates: end: 2013
  7. SODIBIC [Concomitant]
     Route: 048
  8. NILSTAT [Concomitant]
     Active Substance: NYSTATIN
  9. CALCITRIOL. [Concomitant]
     Active Substance: CALCITRIOL
     Route: 048
  10. CELLCEPT [Suspect]
     Active Substance: MYCOPHENOLATE MOFETIL\MYCOPHENOLATE MOFETIL HYDROCHLORIDE
     Route: 048
  11. OMEPRAZOLE. [Concomitant]
     Active Substance: OMEPRAZOLE
     Route: 048
  12. PREDNISONE. [Concomitant]
     Active Substance: PREDNISONE
     Route: 048
  13. MOXONIDINE [Concomitant]
     Active Substance: MOXONIDINE
     Route: 048
  14. PRAVASTATIN. [Concomitant]
     Active Substance: PRAVASTATIN
     Route: 048
  15. RAMIPRIL. [Concomitant]
     Active Substance: RAMIPRIL
     Route: 048
  16. HIPREX (AUSTRALIA) [Concomitant]
     Route: 048
  17. CELLCEPT [Suspect]
     Active Substance: MYCOPHENOLATE MOFETIL\MYCOPHENOLATE MOFETIL HYDROCHLORIDE
     Indication: PRODUCT USED FOR UNKNOWN INDICATION
     Route: 048
  18. TACROLIMUS. [Concomitant]
     Active Substance: TACROLIMUS
     Route: 048
  19. CAPTOPRIL. [Concomitant]
     Active Substance: CAPTOPRIL
     Route: 048
  20. SODIBIC [Concomitant]
     Route: 048
  21. RAMIPRIL. [Concomitant]
     Active Substance: RAMIPRIL
     Route: 048
  22. SENSIPAR [Concomitant]
     Active Substance: CINACALCET HYDROCHLORIDE
     Route: 048
  23. TACROLIMUS. [Concomitant]
     Active Substance: TACROLIMUS
     Route: 048
  24. SIROLIMUS. [Concomitant]
     Active Substance: SIROLIMUS
     Route: 048
  25. TACROLIMUS. [Concomitant]
     Active Substance: TACROLIMUS
     Route: 048
  26. PREDNISONE. [Concomitant]
     Active Substance: PREDNISONE
     Route: 048
  27. CINACALCET. [Concomitant]
     Active Substance: CINACALCET
  28. LASIX [Concomitant]
     Active Substance: FUROSEMIDE
     Route: 048
  29. SODIBIC [Concomitant]
     Route: 048
  30. FERROGRAD C [Concomitant]
     Active Substance: ASCORBIC ACID\FERROUS SULFATE

REACTIONS (20)
  - Campylobacter infection [Unknown]
  - Vulvovaginal warts [Unknown]
  - Blood creatinine increased [Unknown]
  - Nephrocalcinosis [Unknown]
  - Kidney transplant rejection [Unknown]
  - Deep vein thrombosis [Unknown]
  - Urinary tract infection [Unknown]
  - Tubulointerstitial nephritis [Unknown]
  - Fibrosis [Unknown]
  - Urosepsis [Unknown]
  - Pseudomonas infection [Unknown]
  - Transplant rejection [Unknown]
  - Albuminuria [Unknown]
  - Pyelonephritis [Unknown]
  - Blood parathyroid hormone increased [Unknown]
  - Proteinuria [Unknown]
  - Toxicity to various agents [Unknown]
  - Inflammation [Unknown]
  - Squamous cell carcinoma of skin [Recovered/Resolved]
  - Mucoepidermoid carcinoma [Recovered/Resolved]

NARRATIVE: CASE EVENT DATE: 2004
